FAERS Safety Report 5415744-2 (Version None)
Quarter: 2007Q3

REPORT INFORMATION
  Report Type: 
  Country: None (occurrence: None)
  Receive Date: 20070718
  Receipt Date: 20070122
  Transmission Date: 20080115
  Serious: Yes (Hospitalization, Other)
  Sender: FDA-Public Use
  Company Number: 2007005892

PATIENT
  Sex: Male

DRUGS (3)
  1. CELEBREX [Suspect]
     Dates: start: 20040201, end: 20040401
  2. BEXTRA [Suspect]
     Dates: start: 20040101, end: 20040201
  3. VIOXX [Suspect]
     Dosage: ORAL
     Route: 048
     Dates: start: 20040401

REACTIONS (1)
  - MYOCARDIAL INFARCTION [None]
